APPROVED DRUG PRODUCT: CABAZITAXEL
Active Ingredient: CABAZITAXEL
Strength: 60MG/1.5ML (40MG/ML)
Dosage Form/Route: SOLUTION;INTRAVENOUS
Application: A207619 | Product #001
Applicant: BRECKENRIDGE PHARMACEUTICAL INC
Approved: Jun 23, 2022 | RLD: No | RS: No | Type: DISCN